FAERS Safety Report 5331056-X (Version None)
Quarter: 2007Q2

REPORT INFORMATION
  Report Type: 
  Country: None (occurrence: None)
  Receive Date: 20070522
  Receipt Date: 20070518
  Transmission Date: 20071010
  Serious: Yes (Life-Threatening)
  Sender: FDA-Public Use
  Company Number: B0466354A

PATIENT
  Age: 65 Year
  Sex: Female

DRUGS (7)
  1. ZANTAC [Suspect]
     Indication: DRUG USE FOR UNKNOWN INDICATION
     Dosage: 50MG PER DAY
     Route: 065
     Dates: start: 20061207, end: 20070405
  2. KYTRIL [Suspect]
     Indication: DRUG USE FOR UNKNOWN INDICATION
     Dosage: 3MG PER DAY
     Route: 042
     Dates: start: 20061207, end: 20070405
  3. DECADRON [Concomitant]
     Dosage: 16MG PER DAY
     Route: 065
     Dates: start: 20061207, end: 20070405
  4. VENA [Concomitant]
     Dosage: 50MG PER DAY
     Route: 048
     Dates: start: 20061207, end: 20070405
  5. SODIUM CHLORIDE 0.9% [Concomitant]
     Dosage: 20ML UNKNOWN
     Route: 042
  6. VEEN-D [Concomitant]
     Dosage: 500ML UNKNOWN
     Route: 065
  7. BOSMIN [Concomitant]
     Route: 042

REACTIONS (6)
  - CARDIO-RESPIRATORY ARREST [None]
  - COUGH [None]
  - CYANOSIS [None]
  - PALLOR [None]
  - SHOCK [None]
  - VOMITING [None]
